FAERS Safety Report 15974766 (Version 1)
Quarter: 2019Q1

REPORT INFORMATION
  Report Type: Spontaneous
  Country: KP (occurrence: KP)
  Receive Date: 20190218
  Receipt Date: 20190218
  Transmission Date: 20190418
  Serious: Yes (Hospitalization)
  Sender: FDA-Public Use
  Company Number: KP-CPL-000885

PATIENT
  Age: 63 Year
  Sex: Female

DRUGS (2)
  1. BUPIVACAINE/BUPIVACAINE HYDROCHLORIDE [Suspect]
     Active Substance: BUPIVACAINE HYDROCHLORIDE
     Indication: SPINAL ANAESTHESIA
     Dosage: INJECTED INTRATHECALLY
     Route: 037
  2. TELMISARTAN. [Suspect]
     Active Substance: TELMISARTAN
     Indication: HYPERTENSION
     Dosage: 40 MG DAILY FOR SEVEN YEARS

REACTIONS (1)
  - Pulse abnormal [Recovered/Resolved]
